FAERS Safety Report 17229416 (Version 2)
Quarter: 2020Q1

REPORT INFORMATION
  Report Type: Report from Study
  Country: US (occurrence: US)
  Receive Date: 20200103
  Receipt Date: 20200103
  Transmission Date: 20200409
  Serious: Yes (Other)
  Sender: FDA-Public Use
  Company Number: US-PFIZER INC-2019560591

PATIENT

DRUGS (1)
  1. CARBOPLATIN. [Suspect]
     Active Substance: CARBOPLATIN
     Indication: AUTOLOGOUS BONE MARROW TRANSPLANTATION THERAPY
     Dosage: 2400 MG/M2, UNK (HIGH-DOSE)
     Route: 042

REACTIONS (1)
  - Renal failure [Recovering/Resolving]
